FAERS Safety Report 4355502-3 (Version None)
Quarter: 2004Q2

REPORT INFORMATION
  Report Type: 
  Country: None (occurrence: None)
  Receive Date: 20040503
  Receipt Date: 20030818
  Transmission Date: 20050107
  Serious: Yes (Other)
  Sender: FDA-Public Use
  Company Number: PHEH2003US07520

PATIENT

DRUGS (1)
  1. LOTREL [Suspect]

REACTIONS (1)
  - ANGIONEUROTIC OEDEMA [None]
